FAERS Safety Report 18162126 (Version 2)
Quarter: 2022Q2

REPORT INFORMATION
  Report Type: Spontaneous
  Country: US (occurrence: US)
  Receive Date: 20200818
  Receipt Date: 20220620
  Transmission Date: 20220720
  Serious: Yes (Other)
  Sender: FDA-Public Use
  Company Number: US-SAARTEMIS-SAC202008140247

PATIENT
  Age: 54 Year
  Sex: Male

DRUGS (1)
  1. ZANTAC [Suspect]
     Active Substance: RANITIDINE HYDROCHLORIDE
     Indication: Dyspepsia
     Dosage: DO NOT RECALL  QD
     Dates: start: 200601, end: 201901

REACTIONS (1)
  - Colorectal cancer stage IV [Not Recovered/Not Resolved]

NARRATIVE: CASE EVENT DATE: 20190301
